FAERS Safety Report 10732900 (Version 3)
Quarter: 2015Q1

REPORT INFORMATION
  Report Type: Spontaneous
  Country: US (occurrence: US)
  Receive Date: 20150123
  Receipt Date: 20150212
  Transmission Date: 20150721
  Serious: Yes (Death, Hospitalization, Other)
  Sender: FDA-Public Use
  Company Number: US-BAXTER-2015BAX003437

PATIENT
  Sex: Male

DRUGS (1)
  1. DIANEAL LOW CALCIUM PERITONEAL DIALYSIS SOLUTION WITH DEXTROSE [Suspect]
     Active Substance: CALCIUM CHLORIDE\DEXTROSE\MAGNESIUM CHLORIDE\SODIUM CHLORIDE\SODIUM LACTATE
     Indication: PERITONEAL DIALYSIS
     Route: 033
     Dates: end: 20150114

REACTIONS (6)
  - Death [Fatal]
  - Seizure [Unknown]
  - Myocardial infarction [Unknown]
  - Staphylococcal infection [Unknown]
  - Influenza [Unknown]
  - Sepsis [Unknown]

NARRATIVE: CASE EVENT DATE: 20150114
